FAERS Safety Report 4632995-5 (Version None)
Quarter: 2005Q2

REPORT INFORMATION
  Report Type: 
  Country: None (occurrence: None)
  Receive Date: 20050325
  Receipt Date: 20050131
  Transmission Date: 20051028
  Serious: No
  Sender: FDA-Public Use
  Company Number: USA031049056

PATIENT
  Age: 73 Year
  Sex: Male
  Weight: 159 kg

DRUGS (10)
  1. FORTEO [Suspect]
     Indication: OSTEOPOROSIS
     Dosage: 20 UG OTHER
     Dates: start: 20030922
  2. HUMULIN N [Concomitant]
  3. HUMULIN R [Concomitant]
  4. CALCIUM WITH VITAMIN D [Concomitant]
  5. CELEBREX [Concomitant]
  6. ALLOPURINOL [Concomitant]
  7. VASOTEC [Concomitant]
  8. FOSAMAX [Concomitant]
  9. ACTOS [Concomitant]
  10. GLUCOPHAGE [Concomitant]

REACTIONS (11)
  - ARTHRALGIA [None]
  - ASTHENIA [None]
  - BONE PAIN [None]
  - DIZZINESS [None]
  - FATIGUE [None]
  - HEADACHE [None]
  - INSOMNIA [None]
  - MUSCULAR WEAKNESS [None]
  - MUSCULOSKELETAL STIFFNESS [None]
  - MYALGIA [None]
  - NAIL DISORDER [None]
